FAERS Safety Report 7387559-X (Version None)
Quarter: 2011Q1

REPORT INFORMATION
  Report Type: 
  Country: None (occurrence: None)
  Receive Date: 20110331
  Receipt Date: 20110329
  Transmission Date: 20110831
  Serious: Yes (Other)
  Sender: FDA-Public Use
  Company Number: GB-ABBOTT-11P-167-0715079-00

PATIENT
  Age: 67 Year
  Sex: Female

DRUGS (3)
  1. EPILIM [Suspect]
     Indication: CONVULSION
     Route: 048
     Dates: start: 19810101
  2. METFORMIN HCL [Interacting]
     Indication: PRODUCT USED FOR UNKNOWN INDICATION
  3. INSULIN [Interacting]
     Indication: PRODUCT USED FOR UNKNOWN INDICATION
     Dates: start: 20090101

REACTIONS (3)
  - DRUG INTERACTION [None]
  - BLOOD GLUCOSE ABNORMAL [None]
  - PETIT MAL EPILEPSY [None]
